FAERS Safety Report 15575589 (Version 1)
Quarter: 2018Q4

REPORT INFORMATION
  Report Type: Spontaneous
  Country: US (occurrence: US)
  Receive Date: 20181101
  Receipt Date: 20181101
  Transmission Date: 20190205
  Serious: No
  Sender: FDA-Public Use
  Company Number: US-BAUSCH-BL-2018-028193

PATIENT
  Sex: Female

DRUGS (1)
  1. ZYLET [Suspect]
     Active Substance: LOTEPREDNOL ETABONATE\TOBRAMYCIN

REACTIONS (2)
  - Eye swelling [Unknown]
  - Hypersensitivity [Unknown]
